FAERS Safety Report 11234314 (Version 1)
Quarter: 2015Q3

REPORT INFORMATION
  Report Type: Report from Study
  Country: US (occurrence: US)
  Receive Date: 20150702
  Receipt Date: 20150702
  Transmission Date: 20151125
  Serious: Yes (Hospitalization)
  Sender: FDA-Public Use
  Company Number: US-BIOGENIDEC-2015BI089267

PATIENT
  Sex: Female

DRUGS (17)
  1. FORTEO 600MCG/2.4ML PEN INJ [Concomitant]
  2. MIDODRINE HCL [Concomitant]
     Active Substance: MIDODRINE HYDROCHLORIDE
  3. PROVIGIL [Concomitant]
     Active Substance: MODAFINIL
  4. TECFIDERA [Suspect]
     Active Substance: DIMETHYL FUMARATE
     Indication: MULTIPLE SCLEROSIS
     Route: 048
     Dates: start: 201404
  5. MAG-OXIDE [Concomitant]
  6. VITAMIN D1 [Concomitant]
  7. DILANTIN [Concomitant]
     Active Substance: PHENYTOIN
  8. CODEINE SULFATE. [Concomitant]
     Active Substance: CODEINE SULFATE
  9. CALCITRIOL. [Concomitant]
     Active Substance: CALCITRIOL
  10. CORTISONE [Concomitant]
     Active Substance: CORTISONE\HYDROCORTISONE
  11. FENTANYL 12MCG/HR PA [Concomitant]
  12. METHENAMINE MANDELATE POWDER [Concomitant]
  13. POTASSIUM CL ER [Concomitant]
  14. ZOFRAN [Concomitant]
     Active Substance: ONDANSETRON HYDROCHLORIDE
  15. OXCARBAZEPINE. [Concomitant]
     Active Substance: OXCARBAZEPINE
  16. PREDNISONE. [Concomitant]
     Active Substance: PREDNISONE
  17. NEXIUM [Concomitant]
     Active Substance: ESOMEPRAZOLE MAGNESIUM

REACTIONS (4)
  - Fall [Recovered/Resolved]
  - Urinary tract infection [Not Recovered/Not Resolved]
  - Flushing [Recovered/Resolved]
  - Orthostatic hypotension [Not Recovered/Not Resolved]

NARRATIVE: CASE EVENT DATE: 20150612
